FAERS Safety Report 24163203 (Version 2)
Quarter: 2024Q4

REPORT INFORMATION
  Report Type: Spontaneous
  Country: US (occurrence: US)
  Receive Date: 20240801
  Receipt Date: 20241001
  Transmission Date: 20250115
  Serious: No
  Sender: ALEXION PHARMACEUTICALS
  Company Number: 2024A169005

PATIENT

DRUGS (1)
  1. BYDUREON BCISE [Suspect]
     Active Substance: EXENATIDE
     Dosage: 2 MILLIGRAM, UNK, FREQUENCY: UNK

REACTIONS (4)
  - Confusional state [Unknown]
  - Product packaging quantity issue [Unknown]
  - Wrong technique in device usage process [Unknown]
  - Device use issue [Unknown]
